FAERS Safety Report 15613055 (Version 1)
Quarter: 2018Q4

REPORT INFORMATION
  Report Type: Spontaneous
  Country: JP (occurrence: JP)
  Receive Date: 20181113
  Receipt Date: 20181113
  Transmission Date: 20190205
  Serious: Yes (Hospitalization, Other)
  Sender: FDA-Public Use
  Company Number: JP-PFIZER INC-2018454705

PATIENT
  Age: 69 Year
  Sex: Female
  Weight: 43 kg

DRUGS (4)
  1. LYRICA [Suspect]
     Active Substance: PREGABALIN
     Dosage: 100 MG, UNK
  2. LYRICA [Suspect]
     Active Substance: PREGABALIN
     Dosage: 150 MG, UNK
  3. FENTOS [Concomitant]
     Active Substance: FENTANYL
     Indication: PAIN
  4. ONETRAM [Suspect]
     Active Substance: TRAMADOL HYDROCHLORIDE

REACTIONS (11)
  - Depression [Unknown]
  - Decreased appetite [Unknown]
  - Dysgraphia [Unknown]
  - Vomiting [Unknown]
  - Colon cancer [Unknown]
  - Weight increased [Unknown]
  - Myalgia [Unknown]
  - Insomnia [Unknown]
  - Constipation [Recovering/Resolving]
  - Speech disorder [Unknown]
  - Malaise [Unknown]

NARRATIVE: CASE EVENT DATE: 20180423
